FAERS Safety Report 5924138-2 (Version None)
Quarter: 2008Q4

REPORT INFORMATION
  Report Type: 
  Country: None (occurrence: None)
  Receive Date: 20081020
  Receipt Date: 20081016
  Transmission Date: 20090506
  Serious: Yes (Death, Other)
  Sender: FDA-Public Use
  Company Number: DK-BRISTOL-MYERS SQUIBB COMPANY-14283220

PATIENT
  Age: 84 Year
  Sex: Male

DRUGS (7)
  1. PRAVASTATIN [Suspect]
     Indication: HYPERCHOLESTEROLAEMIA
     Dates: start: 20070503, end: 20070803
  2. ESOPRAL [Concomitant]
     Indication: DYSPEPSIA
  3. ESOPRAL [Concomitant]
     Indication: HIATUS HERNIA
  4. ESOPRAL [Concomitant]
     Indication: GASTRITIS
  5. CENTYL K [Concomitant]
  6. SOTALOL [Concomitant]
     Indication: HYPERTENSION
  7. MAGNYL [Concomitant]
     Indication: THROMBOSIS PROPHYLAXIS

REACTIONS (3)
  - ATRIAL FIBRILLATION [None]
  - PNEUMONIA [None]
  - RHABDOMYOLYSIS [None]
